FAERS Safety Report 26128321 (Version 1)
Quarter: 2025Q4

REPORT INFORMATION
  Report Type: Spontaneous
  Country: US (occurrence: US)
  Receive Date: 20251207
  Receipt Date: 20251207
  Transmission Date: 20260118
  Serious: Yes (Death)
  Sender: LUPIN
  Company Number: US-LUPIN PHARMACEUTICALS INC.-2025-10908

PATIENT
  Age: 72 Year
  Sex: Male

DRUGS (10)
  1. AZACITIDINE [Suspect]
     Active Substance: AZACITIDINE
     Indication: Myelodysplastic syndrome with excess blasts
     Dosage: UNK (THREE CYCLES)
     Route: 065
  2. AZACITIDINE [Suspect]
     Active Substance: AZACITIDINE
     Indication: Acute promyelocytic leukaemia
  3. VENETOCLAX [Suspect]
     Active Substance: VENETOCLAX
     Indication: Myelodysplastic syndrome with excess blasts
     Dosage: UNK (THREE CYCLES)
     Route: 065
  4. VENETOCLAX [Suspect]
     Active Substance: VENETOCLAX
     Indication: Acute promyelocytic leukaemia
  5. TRETINOIN [Concomitant]
     Active Substance: TRETINOIN
     Indication: Acute promyelocytic leukaemia
     Dosage: UNK (AS A PART OF INDUCTION THERAPY)
     Route: 065
  6. TRETINOIN [Concomitant]
     Active Substance: TRETINOIN
     Dosage: UNK (AS A PART OF CONSOLIDATION THERAPY)
     Route: 065
  7. TRETINOIN [Concomitant]
     Active Substance: TRETINOIN
     Dosage: UNK (AS A PART OF MAINTENANCE THERAPY)
     Route: 065
  8. DAUNORUBICIN [Concomitant]
     Active Substance: DAUNORUBICIN
     Indication: Acute promyelocytic leukaemia
     Dosage: UNK (AS A PART OF INDUCTION THERAPY)
     Route: 065
  9. DAUNORUBICIN [Concomitant]
     Active Substance: DAUNORUBICIN
     Dosage: UNK (AS A PART OF CONSOLIDATION THERAPY)
     Route: 065
  10. CYTARABINE [Concomitant]
     Active Substance: CYTARABINE
     Indication: Acute promyelocytic leukaemia
     Dosage: UNK (AS A PART OF INDUCTION THERAPY)
     Route: 065

REACTIONS (1)
  - Drug ineffective [Fatal]
